FAERS Safety Report 4491936-4 (Version None)
Quarter: 2004Q4

REPORT INFORMATION
  Report Type: 
  Country: None (occurrence: None)
  Receive Date: 20041029
  Receipt Date: 20041029
  Transmission Date: 20050328
  Serious: Yes (Other)
  Sender: FDA-Public Use
  Company Number: None

PATIENT
  Age: 59 Year
  Sex: Female
  Weight: 91.6266 kg

DRUGS (2)
  1. ZOLOFT [Suspect]
     Indication: DEATH OF RELATIVE
     Dosage: 50 MG   DAILY   ORAL
     Route: 048
     Dates: start: 19990220, end: 20041015
  2. ZOLOFT [Suspect]
     Indication: DEPRESSION
     Dosage: 50 MG   DAILY   ORAL
     Route: 048
     Dates: start: 19990220, end: 20041015

REACTIONS (4)
  - DEPRESSED LEVEL OF CONSCIOUSNESS [None]
  - DISORIENTATION [None]
  - DRUG WITHDRAWAL SYNDROME [None]
  - HEART RATE INCREASED [None]
